FAERS Safety Report 10298842 (Version 1)
Quarter: 2014Q3

REPORT INFORMATION
  Report Type: Spontaneous
  Country: PH (occurrence: PH)
  Receive Date: 20140711
  Receipt Date: 20140711
  Transmission Date: 20150326
  Serious: Yes (Death, Hospitalization)
  Sender: FDA-Public Use
  Company Number: PHHY2014PH085125

PATIENT
  Age: 54 Year
  Sex: Male

DRUGS (2)
  1. SIMULECT [Suspect]
     Active Substance: BASILIXIMAB
     Dosage: UNK UKN, UNK
  2. MYFORTIC [Suspect]
     Active Substance: MYCOPHENOLATE SODIUM
     Dosage: UNK UKN, UNK

REACTIONS (4)
  - Blood pressure increased [Unknown]
  - Blood creatinine increased [Unknown]
  - Death [Fatal]
  - Renal tubular necrosis [Unknown]
